FAERS Safety Report 22656089 (Version 1)
Quarter: 2023Q2

REPORT INFORMATION
  Report Type: Spontaneous
  Country: US (occurrence: None)
  Receive Date: 20230629
  Receipt Date: 20230629
  Transmission Date: 20230721
  Serious: Yes (Hospitalization)
  Sender: FDA-Public Use
  Company Number: None

PATIENT
  Age: 62 Year
  Sex: Female

DRUGS (35)
  1. TADALAFIL [Suspect]
     Active Substance: TADALAFIL
     Indication: Cardiac failure
     Route: 048
     Dates: start: 20210616
  2. ALBUTEROL [Concomitant]
     Active Substance: ALBUTEROL
  3. ALPRAZOLAM [Concomitant]
     Active Substance: ALPRAZOLAM
  4. AMLODIPINE [Concomitant]
     Active Substance: AMLODIPINE BESYLATE
  5. ACETAMINOPHEN\CODEINE PHOSPHATE [Concomitant]
     Active Substance: ACETAMINOPHEN\CODEINE PHOSPHATE
  6. ASPIRIN [Concomitant]
     Active Substance: ASPIRIN
  7. ATORVASTATIN [Concomitant]
     Active Substance: ATORVASTATIN
  8. AZITHROMYCIN [Concomitant]
     Active Substance: AZITHROMYCIN
  9. BASAGLAR INJ [Concomitant]
  10. CARVEDILOL [Concomitant]
     Active Substance: CARVEDILOL
  11. DILTIAZEM [Concomitant]
     Active Substance: DILTIAZEM
  12. EFFEXOR [Concomitant]
     Active Substance: VENLAFAXINE HYDROCHLORIDE
  13. EZETIMIBE [Concomitant]
     Active Substance: EZETIMIBE
  14. FLUCONAZOLE [Concomitant]
     Active Substance: FLUCONAZOLE
  15. FUROSEMIDE [Concomitant]
     Active Substance: FUROSEMIDE
  16. GABAPENTIN [Concomitant]
     Active Substance: GABAPENTIN
  17. HYDROCHLOROTHIAZIDE [Concomitant]
     Active Substance: HYDROCHLOROTHIAZIDE
  18. IBUPROFEN [Concomitant]
     Active Substance: IBUPROFEN
  19. KLOR-CON [Concomitant]
     Active Substance: POTASSIUM CHLORIDE
  20. LIPITOR [Concomitant]
     Active Substance: ATORVASTATIN CALCIUM
  21. MELOXICAM [Concomitant]
     Active Substance: MELOXICAM
  22. METAXALONE [Concomitant]
     Active Substance: METAXALONE
  23. METHOCARBAMOL [Concomitant]
     Active Substance: METHOCARBAMOL
  24. NICOTINE [Concomitant]
     Active Substance: NICOTINE
  25. OMEPRAZOLE [Concomitant]
     Active Substance: OMEPRAZOLE
  26. ONDANSETRON [Concomitant]
     Active Substance: ONDANSETRON
  27. POTASSIUM POW CHLORIDE [Concomitant]
  28. TORSEMIDE [Concomitant]
     Active Substance: TORSEMIDE
  29. TRELEGY AER ELLIPTA [Concomitant]
  30. TRULICITY [Concomitant]
     Active Substance: DULAGLUTIDE
  31. VALACYCLOVIR TAB [Concomitant]
  32. VALTREX [Concomitant]
     Active Substance: VALACYCLOVIR HYDROCHLORIDE
  33. VENLAFAXINE [Concomitant]
     Active Substance: VENLAFAXINE HYDROCHLORIDE
  34. VITAMIN D [Concomitant]
     Active Substance: VITAMIN D NOS
  35. XANAX [Concomitant]
     Active Substance: ALPRAZOLAM

REACTIONS (1)
  - Respiratory disorder [None]

NARRATIVE: CASE EVENT DATE: 20230620
